FAERS Safety Report 5636584-5 (Version None)
Quarter: 2008Q1

REPORT INFORMATION
  Report Type: 
  Country: None (occurrence: None)
  Receive Date: 20080219
  Receipt Date: 20080219
  Transmission Date: 20080703
  Serious: Yes (Hospitalization)
  Sender: FDA-Public Use
  Company Number: None

PATIENT
  Age: 57 Year
  Sex: Male
  Weight: 79.8 kg

DRUGS (1)
  1. MIRTAZAPINE [Suspect]
     Indication: DEPRESSION
     Dosage: 15MG EVERY DAY PO
     Route: 048
     Dates: start: 20070301, end: 20070314

REACTIONS (7)
  - BALANCE DISORDER [None]
  - DIZZINESS [None]
  - HEART RATE INCREASED [None]
  - HYPOAESTHESIA [None]
  - HYPOTENSION [None]
  - ORTHOSTATIC HYPOTENSION [None]
  - SYNCOPE [None]
